FAERS Safety Report 18658953 (Version 1)
Quarter: 2020Q4

REPORT INFORMATION
  Report Type: Spontaneous
  Country: US (occurrence: US)
  Receive Date: 20201224
  Receipt Date: 20201224
  Transmission Date: 20210114
  Serious: Yes (Hospitalization, Other)
  Sender: FDA-Public Use
  Company Number: US-UNITED THERAPEUTICS-UNT-2020-017867

PATIENT
  Age: 38 Year
  Sex: Female
  Weight: 68.03 kg

DRUGS (6)
  1. REMODULIN [Suspect]
     Active Substance: TREPROSTINIL
     Indication: PULMONARY ARTERIAL HYPERTENSION
     Dosage: UNK, CONTINUING
     Route: 058
     Dates: start: 20201109
  2. REMODULIN [Suspect]
     Active Substance: TREPROSTINIL
     Dosage: 0.040 ?G/KG, CONTINUING
     Route: 058
     Dates: start: 202011
  3. ELIQUIS [Concomitant]
     Active Substance: APIXABAN
     Indication: PRODUCT USED FOR UNKNOWN INDICATION
     Dosage: UNK
     Route: 065
  4. OPSUMIT [Suspect]
     Active Substance: MACITENTAN
     Indication: PRODUCT USED FOR UNKNOWN INDICATION
     Dosage: UNK
     Route: 065
  5. SILDENAFIL CITRATE. [Concomitant]
     Active Substance: SILDENAFIL CITRATE
     Indication: PRODUCT USED FOR UNKNOWN INDICATION
     Dosage: UNK
     Route: 065
  6. REMODULIN [Suspect]
     Active Substance: TREPROSTINIL
     Dosage: 0.037 ?G/KG, CONTINUING
     Route: 058
     Dates: start: 2020

REACTIONS (20)
  - Pain [Unknown]
  - Infusion site pain [Not Recovered/Not Resolved]
  - Infusion site swelling [Unknown]
  - Nausea [Unknown]
  - Vomiting [Recovered/Resolved]
  - Hiccups [Unknown]
  - Gait disturbance [Unknown]
  - Thirst [Unknown]
  - Infusion site bruising [Unknown]
  - Hypoaesthesia [Unknown]
  - Malaise [Unknown]
  - Pain in extremity [Unknown]
  - Headache [Unknown]
  - Cardiac failure congestive [Unknown]
  - Fatigue [Unknown]
  - Peripheral swelling [Unknown]
  - Back pain [Unknown]
  - Syncope [Unknown]
  - Diarrhoea [Recovering/Resolving]
  - Dehydration [Unknown]

NARRATIVE: CASE EVENT DATE: 2020
